FAERS Safety Report 5911073-9 (Version None)
Quarter: 2008Q4

REPORT INFORMATION
  Report Type: 
  Country: None (occurrence: None)
  Receive Date: 20081007
  Receipt Date: 20070928
  Transmission Date: 20090506
  Serious: No
  Sender: FDA-Public Use
  Company Number: US-BRISTOL-MYERS SQUIBB COMPANY-13923602

PATIENT
  Age: 33 Year
  Sex: Male
  Weight: 70 kg

DRUGS (2)
  1. AVAPRO [Suspect]
     Indication: HYPERTENSION
     Dosage: PATIENT WAS TAKING LESS THAN 1/2 TABLET.
     Route: 048
     Dates: start: 20070803
  2. OXYBUTYNIN CHLORIDE [Concomitant]

REACTIONS (1)
  - ALOPECIA [None]
